FAERS Safety Report 5105125-3 (Version None)
Quarter: 2006Q3

REPORT INFORMATION
  Report Type: 
  Country: None (occurrence: None)
  Receive Date: 20060911
  Receipt Date: 20060829
  Transmission Date: 20061208
  Serious: Yes (Hospitalization)
  Sender: FDA-Public Use
  Company Number: 2006104963

PATIENT
  Age: 19 Year
  Sex: Male

DRUGS (4)
  1. LITHIUM (LITHIUM) [Suspect]
     Indication: BIPOLAR DISORDER
     Dosage: 1200 MG (600 MG, 2 IN 1 D)
  2. SERTRALINE [Suspect]
     Indication: BIPOLAR DISORDER
  3. ARIPIPRAZOLE (ARIPIPRZOLE) [Concomitant]
     Indication: BIPOLAR DISORDER
     Dosage: 30 MG (15 MG, 2 IN 1 D) ORAL
     Route: 048
  4. VALPROIC ACID [Concomitant]
     Indication: BIPOLAR DISORDER

REACTIONS (12)
  - AGGRESSION [None]
  - AGITATION [None]
  - ASTHENIA [None]
  - BLOOD CREATINE PHOSPHOKINASE INCREASED [None]
  - DELUSION OF GRANDEUR [None]
  - DRUG LEVEL ABOVE THERAPEUTIC [None]
  - MOOD SWINGS [None]
  - MYOGLOBIN BLOOD INCREASED [None]
  - NEUROLEPTIC MALIGNANT SYNDROME [None]
  - PARANOIA [None]
  - TREATMENT NONCOMPLIANCE [None]
  - WHITE BLOOD CELL COUNT INCREASED [None]
